FAERS Safety Report 9744616 (Version 1)
Quarter: 2013Q4

REPORT INFORMATION
  Report Type: Spontaneous
  Country: FI (occurrence: FI)
  Receive Date: 20131210
  Receipt Date: 20131210
  Transmission Date: 20140711
  Serious: Yes (Other)
  Sender: FDA-Public Use
  Company Number: FI-ASTRAZENECA-2013SE88482

PATIENT
  Age: 17631 Day
  Sex: Female

DRUGS (1)
  1. VIMOVO [Suspect]
     Indication: PAIN
     Route: 048
     Dates: start: 20131116, end: 20131116

REACTIONS (4)
  - Biliary colic [Unknown]
  - Abdominal distension [Unknown]
  - Abdominal pain [Recovered/Resolved]
  - Diarrhoea [Unknown]
